FAERS Safety Report 7058168-7 (Version None)
Quarter: 2010Q4

REPORT INFORMATION
  Report Type: 
  Country: None (occurrence: None)
  Receive Date: 20101022
  Receipt Date: 20101012
  Transmission Date: 20110411
  Serious: Yes (Hospitalization)
  Sender: FDA-Public Use
  Company Number: CH-WATSON-2010-13048

PATIENT
  Age: 50 Year
  Sex: Male

DRUGS (2)
  1. RISPERDONE [Suspect]
     Indication: SCHIZOAFFECTIVE DISORDER
     Dosage: 6 MG, DAILY
     Route: 048
  2. LITHIUM [Suspect]
     Indication: SCHIZOAFFECTIVE DISORDER
     Dosage: 1575 MG, DAILY
     Route: 048

REACTIONS (2)
  - CATATONIA [None]
  - NEUROLEPTIC MALIGNANT SYNDROME [None]
